FAERS Safety Report 17564749 (Version 3)
Quarter: 2025Q2

REPORT INFORMATION
  Report Type: Spontaneous
  Country: DE (occurrence: DE)
  Receive Date: 20200320
  Receipt Date: 20250609
  Transmission Date: 20250717
  Serious: Yes (Life-Threatening, Hospitalization, Other)
  Sender: MYLAN
  Company Number: DE-TORRENT-00016828

PATIENT
  Age: 63 Year
  Sex: Female
  Weight: 93 kg

DRUGS (16)
  1. METHOTREXATE [Suspect]
     Active Substance: METHOTREXATE
     Indication: Rheumatoid arthritis
  2. METHOTREXATE [Suspect]
     Active Substance: METHOTREXATE
     Dosage: WEEKLY DOSE OF 15 MG
  3. LEFLUNOMIDE [Suspect]
     Active Substance: LEFLUNOMIDE
     Indication: Rheumatoid arthritis
  4. LEFLUNOMIDE [Suspect]
     Active Substance: LEFLUNOMIDE
     Dosage: DAILY DOSE OF 20 MG
  5. PREDNISOLONE [Suspect]
     Active Substance: PREDNISOLONE
     Indication: Product used for unknown indication
     Dosage: FOR 5 DAYS, FOLLOWED BY TAPER-OFF
  6. ACETAZOLAMIDE [Suspect]
     Active Substance: ACETAZOLAMIDE
     Indication: Metabolic alkalosis
  7. METAMIZOLE [Concomitant]
     Active Substance: METAMIZOLE
     Indication: Analgesic therapy
  8. PANTOPRAZOLE [Concomitant]
     Active Substance: PANTOPRAZOLE
     Indication: Chronic gastritis
     Dosage: 40 MG TWICE DAILY
  9. IRON [Concomitant]
     Active Substance: IRON
     Indication: Mineral supplementation
  10. FOLIC ACID [Concomitant]
     Active Substance: FOLIC ACID
     Indication: Rheumatoid arthritis
     Dosage: 5 MILLIGRAM, QW, ON THE DAY AFTER THE METHOTREXATE ADMINISTRATION
  11. FOLIC ACID [Concomitant]
     Active Substance: FOLIC ACID
     Indication: Supplementation therapy
  12. FUROSEMIDE [Concomitant]
     Active Substance: FUROSEMIDE
     Dosage: 40 MILLIGRAM, QD, 40 MG ONCE DAILY FOR 4 WEEKS
  13. SIMVASTATIN [Concomitant]
     Active Substance: SIMVASTATIN
     Indication: Hyperlipidaemia
     Dosage: 20 MG ONCE DAILY
  14. COTRIMOXAZOLE [Concomitant]
     Active Substance: SULFAMETHOXAZOLE\TRIMETHOPRIM
     Indication: Urinary tract infection bacterial
  15. COTRIMOXAZOLE [Concomitant]
     Active Substance: SULFAMETHOXAZOLE\TRIMETHOPRIM
     Indication: Escherichia infection
  16. INSULIN NOS [Concomitant]
     Active Substance: INSULIN NOS
     Indication: Type 2 diabetes mellitus

REACTIONS (33)
  - Respiratory alkalosis [Recovered/Resolved]
  - Toxicity to various agents [Recovered/Resolved]
  - Drug interaction [Unknown]
  - Haemochromatosis [Recovered/Resolved]
  - Thrombotic microangiopathy [Recovered/Resolved]
  - Drug-induced liver injury [Recovered/Resolved]
  - Metabolic alkalosis [Recovered/Resolved]
  - Acute hepatic failure [Recovered/Resolved]
  - Pneumonia influenzal [Recovered/Resolved]
  - Acute kidney injury [Recovered/Resolved]
  - Hypoalbuminaemia [Recovered/Resolved]
  - Overdose [Recovered/Resolved]
  - Coagulopathy [Recovered/Resolved]
  - Hepatosplenomegaly [Recovered/Resolved]
  - Sinus tachycardia [Recovered/Resolved]
  - Nephrotic syndrome [Recovered/Resolved]
  - Anaemia folate deficiency [Recovered/Resolved]
  - Hepatotoxicity [Recovered/Resolved]
  - Escherichia urinary tract infection [Recovered/Resolved]
  - Haemolytic anaemia [Recovered/Resolved]
  - Pulmonary oedema [Recovered/Resolved]
  - Drug half-life increased [Recovered/Resolved]
  - Hepatic cirrhosis [Recovered/Resolved]
  - Hypokalaemia [Recovered/Resolved]
  - Hypovolaemia [Recovered/Resolved]
  - Livedo reticularis [Recovered/Resolved]
  - Coombs negative haemolytic anaemia [Recovered/Resolved]
  - Immunosuppressant drug level increased [Unknown]
  - Thrombocytopenia [Recovered/Resolved]
  - Haemolysis [Recovered/Resolved]
  - Ascites [Recovered/Resolved]
  - Hyperglycaemia [Recovered/Resolved]
  - Drug ineffective [Recovered/Resolved]
